FAERS Safety Report 9728191 (Version 2)
Quarter: 2014Q1

REPORT INFORMATION
  Report Type: Spontaneous
  Country: US (occurrence: None)
  Receive Date: 20131202
  Receipt Date: 20140127
  Transmission Date: 20141002
  Serious: Yes (Hospitalization, Other)
  Sender: FDA-Public Use
  Company Number: SYM-2013-13321

PATIENT
  Age: 68 Year
  Sex: Female

DRUGS (1)
  1. XENAZINE (12.5 MILLIGRAM, TABLET) (TETRABENAZINE) [Suspect]
     Indication: HUNTINGTON^S DISEASE
     Dosage: 12.5 MG, 2 IN 1 D
     Route: 048
     Dates: start: 2013, end: 2013

REACTIONS (7)
  - Cellulitis [None]
  - Arthritis [None]
  - Depression [None]
  - Feeling abnormal [None]
  - Arthritis [None]
  - Cellulitis [None]
  - Cellulitis [None]
